FAERS Safety Report 15602869 (Version 1)
Quarter: 2018Q4

REPORT INFORMATION
  Report Type: Spontaneous
  Country: US (occurrence: US)
  Receive Date: 20181109
  Receipt Date: 20181109
  Transmission Date: 20190205
  Serious: No
  Sender: FDA-Public Use
  Company Number: US-MYLANLABS-2018M1078316

PATIENT
  Sex: Male

DRUGS (1)
  1. PREDNISONE. [Suspect]
     Active Substance: PREDNISONE
     Indication: ADRENAL INSUFFICIENCY
     Dosage: UNK UNK, QD
     Route: 048

REACTIONS (7)
  - Insomnia [Not Recovered/Not Resolved]
  - Product substitution issue [Unknown]
  - Palpitations [Not Recovered/Not Resolved]
  - Fear [Not Recovered/Not Resolved]
  - Panic attack [Not Recovered/Not Resolved]
  - Anxiety [Not Recovered/Not Resolved]
  - Impaired work ability [Not Recovered/Not Resolved]
